FAERS Safety Report 12245532 (Version 1)
Quarter: 2016Q2

REPORT INFORMATION
  Report Type: Report from Study
  Country: US (occurrence: US)
  Receive Date: 20160407
  Receipt Date: 20160407
  Transmission Date: 20160815
  Serious: Yes (Hospitalization, Other)
  Sender: FDA-Public Use
  Company Number: US-SA-2014SA006653

PATIENT
  Age: 61 Year
  Sex: Female

DRUGS (5)
  1. AUBAGIO [Suspect]
     Active Substance: TERIFLUNOMIDE
     Indication: MULTIPLE SCLEROSIS
     Dosage: FREQ: EVERY 5 DAYS
     Route: 048
  2. AUBAGIO [Suspect]
     Active Substance: TERIFLUNOMIDE
     Indication: MULTIPLE SCLEROSIS
     Dosage: FREQ: EVERY 5 DAYS
     Route: 048
  3. AMPYRA [Suspect]
     Active Substance: DALFAMPRIDINE
     Route: 065
     Dates: start: 20151106
  4. AUBAGIO [Suspect]
     Active Substance: TERIFLUNOMIDE
     Indication: MULTIPLE SCLEROSIS
     Route: 048
     Dates: start: 20131229
  5. AUBAGIO [Suspect]
     Active Substance: TERIFLUNOMIDE
     Indication: MULTIPLE SCLEROSIS
     Dosage: FREQ: EVERY 5 DAYS
     Route: 048

REACTIONS (28)
  - Constipation [Unknown]
  - Pollakiuria [Unknown]
  - Sensory disturbance [Unknown]
  - Gait disturbance [Not Recovered/Not Resolved]
  - Pulmonary mass [Not Recovered/Not Resolved]
  - Bladder disorder [Unknown]
  - Muscular weakness [Unknown]
  - Fall [Unknown]
  - Abdominal distension [Unknown]
  - Back pain [Unknown]
  - Memory impairment [Not Recovered/Not Resolved]
  - Chest discomfort [Recovering/Resolving]
  - Contusion [Not Recovered/Not Resolved]
  - Muscle spasms [Unknown]
  - Inappropriate schedule of drug administration [Unknown]
  - Stress [Unknown]
  - Energy increased [Unknown]
  - Sleep disorder [Unknown]
  - Hot flush [Unknown]
  - Condition aggravated [Unknown]
  - Pain in extremity [Unknown]
  - Migraine [Unknown]
  - Condition aggravated [Not Recovered/Not Resolved]
  - Blood pressure increased [Recovered/Resolved]
  - Presyncope [Unknown]
  - Visual impairment [Unknown]
  - Speech disorder [Not Recovered/Not Resolved]
  - Aphasia [Not Recovered/Not Resolved]

NARRATIVE: CASE EVENT DATE: 201412
